FAERS Safety Report 6223545-0 (Version None)
Quarter: 2009Q2

REPORT INFORMATION
  Report Type: 
  Country: None (occurrence: None)
  Receive Date: 20090610
  Receipt Date: 20090406
  Transmission Date: 20091009
  Serious: Yes (Death)
  Sender: FDA-Public Use
  Company Number: 2007323772

PATIENT
  Age: 17 Year
  Sex: Female
  Weight: 50.3 kg

DRUGS (3)
  1. BEN-GAY ULTRA (METHOL, CAMPHOR, METHYLSALICYLATE) [Suspect]
     Indication: DRUG USE FOR UNKNOWN INDICATION
     Dosage: AS DIRECTED; TOPICAL
     Route: 061
  2. BENADRYL [Suspect]
     Indication: DRUG USE FOR UNKNOWN INDICATION
     Dosage: UNSPECIFIED, ORAL
     Route: 048
  3. DRUG, UNSPECIFIED (DRUG, UNSPECIFIED) [Suspect]
     Indication: DRUG USE FOR UNKNOWN INDICATION
     Dosage: UNSPECIFIED, TOPICAL
     Route: 061

REACTIONS (15)
  - ABDOMINAL ADHESIONS [None]
  - ACCIDENTAL DEATH [None]
  - ACCIDENTAL OVERDOSE [None]
  - ASTHMA [None]
  - BRAIN OEDEMA [None]
  - CONJUNCTIVAL DISORDER [None]
  - DYSPNOEA [None]
  - EXCORIATION [None]
  - FATIGUE [None]
  - HEPATIC CONGESTION [None]
  - PERITONEAL ADHESIONS [None]
  - SKIN ODOUR ABNORMAL [None]
  - THERAPEUTIC AGENT TOXICITY [None]
  - VAGINAL HAEMORRHAGE [None]
  - VOMITING [None]
